FAERS Safety Report 7585672-5 (Version None)
Quarter: 2011Q2

REPORT INFORMATION
  Report Type: 
  Country: None (occurrence: None)
  Receive Date: 20110629
  Receipt Date: 20110629
  Transmission Date: 20111010
  Serious: Yes (Other)
  Sender: FDA-Public Use
  Company Number: None

PATIENT
  Age: 63 Year
  Sex: Male
  Weight: 109.7705 kg

DRUGS (1)
  1. SERTRALINE HYDROCHLORIDE [Suspect]
     Dosage: 1/2 TAB A DAY
     Dates: start: 20110604, end: 20110612

REACTIONS (7)
  - DIARRHOEA [None]
  - TREMOR [None]
  - NAUSEA [None]
  - COORDINATION ABNORMAL [None]
  - SOMNOLENCE [None]
  - ABDOMINAL PAIN UPPER [None]
  - CONFUSIONAL STATE [None]
